FAERS Safety Report 8925311 (Version 1)
Quarter: 2012Q4

REPORT INFORMATION
  Report Type: 
  Country: GB (occurrence: GB)
  Receive Date: 20121126
  Receipt Date: 20121126
  Transmission Date: 20130627
  Serious: Yes (Hospitalization)
  Sender: FDA-Public Use
  Company Number: GB-ROCHE-1156658

PATIENT
  Age: 47 Year
  Sex: Female

DRUGS (9)
  1. RITUXIMAB [Suspect]
     Indication: B-CELL LYMPHOMA
     Route: 065
     Dates: start: 20110502
  2. AMOXICILLIN\CLAVULANATE POTASSIUM [Concomitant]
     Route: 042
     Dates: start: 20121019
  3. CYCLOPHOSPHAMIDE [Concomitant]
  4. DICLOFENAC SODIUM [Concomitant]
     Route: 048
     Dates: start: 20121022
  5. DOXORUBICIN [Concomitant]
  6. METRONIDAZOLE [Concomitant]
     Route: 041
     Dates: start: 20121020
  7. ONCOVIN [Concomitant]
  8. PARACETAMOL [Concomitant]
     Route: 048
     Dates: start: 20121022
  9. PREDNISOLONE [Concomitant]

REACTIONS (6)
  - C-reactive protein increased [Not Recovered/Not Resolved]
  - Lymphocyte count decreased [Not Recovered/Not Resolved]
  - Neutrophil count increased [Not Recovered/Not Resolved]
  - Platelet count increased [Not Recovered/Not Resolved]
  - White blood cell count increased [Not Recovered/Not Resolved]
  - Impaired healing [Not Recovered/Not Resolved]
